FAERS Safety Report 7161298-2 (Version None)
Quarter: 2010Q4

REPORT INFORMATION
  Report Type: 
  Country: None (occurrence: None)
  Receive Date: 20101215
  Receipt Date: 20101207
  Transmission Date: 20110411
  Serious: Yes (Other)
  Sender: FDA-Public Use
  Company Number: IT-JNJFOC-20101202779

PATIENT
  Age: 44 Year
  Sex: Male

DRUGS (11)
  1. LEVOFLOXACIN [Suspect]
     Indication: PNEUMONIA LEGIONELLA
     Route: 042
  2. LEVOFLOXACIN [Suspect]
     Route: 042
  3. AMOXICILLIN AND CLAVULANATE POTASSIUM [Suspect]
     Indication: HYPERPYREXIA
     Route: 048
  4. AMOXICILLIN AND CLAVULANATE POTASSIUM [Suspect]
     Indication: HEADACHE
     Route: 048
  5. AMOXICILLIN AND CLAVULANATE POTASSIUM [Suspect]
     Indication: ASTHENIA
     Route: 048
  6. PIPERACILLIN AND TAZOBACTAM [Suspect]
     Indication: PRODUCT USED FOR UNKNOWN INDICATION
     Route: 042
  7. CLARITHROMYCIN [Suspect]
     Indication: PRODUCT USED FOR UNKNOWN INDICATION
     Route: 048
  8. RIFAMPICIN [Concomitant]
     Indication: PNEUMONIA LEGIONELLA
     Route: 065
  9. FLUCONAZOLE [Concomitant]
     Indication: PNEUMONIA LEGIONELLA
     Route: 042
  10. METHYLPREDNISOLONE [Concomitant]
     Indication: PNEUMONIA LEGIONELLA
     Route: 042
  11. METHYLPREDNISOLONE [Concomitant]
     Route: 042

REACTIONS (6)
  - DRUG INEFFECTIVE [None]
  - EOSINOPHILIC PNEUMONIA ACUTE [None]
  - MUSCLE FATIGUE [None]
  - PLEURAL EFFUSION [None]
  - PNEUMOTHORAX [None]
  - RESPIRATORY DISTRESS [None]
